FAERS Safety Report 8126900 (Version 3)
Quarter: 2013Q4

REPORT INFORMATION
  Report Type: Report from Study
  Country: AU (occurrence: AU)
  Receive Date: 20110908
  Receipt Date: 20131227
  Transmission Date: 20140711
  Serious: Yes (Hospitalization)
  Sender: FDA-Public Use
  Company Number: PHHO2010AU07340

PATIENT
  Age: 51 Year
  Sex: Male
  Weight: 78 kg

DRUGS (3)
  1. AEB071 [Suspect]
     Indication: RENAL TRANSPLANT
     Dosage: 300 MG, BID
     Route: 048
     Dates: start: 20100318, end: 20100510
  2. COMPARATOR PROGRAF [Suspect]
     Indication: RENAL TRANSPLANT
  3. PREDNISONE [Suspect]
     Indication: RENAL TRANSPLANT

REACTIONS (2)
  - Polyomavirus-associated nephropathy [Recovered/Resolved]
  - BK virus infection [Recovering/Resolving]
